FAERS Safety Report 4921372-5 (Version None)
Quarter: 2006Q1

REPORT INFORMATION
  Report Type: 
  Country: None (occurrence: None)
  Receive Date: 20060222
  Receipt Date: 20060222
  Transmission Date: 20060701
  Serious: Yes (Hospitalization)
  Sender: FDA-Public Use
  Company Number: None

PATIENT
  Age: 83 Year
  Sex: Female
  Weight: 90 kg

DRUGS (15)
  1. ZYVOX [Suspect]
     Indication: INFECTION
     Dosage: 600 MG IV BID
     Route: 042
     Dates: start: 20050909, end: 20050927
  2. ATIVAN [Concomitant]
  3. MORPHINE [Concomitant]
  4. PHENERGAN [Concomitant]
  5. OXYCODONE AND ACETAMINOPHEN [Concomitant]
  6. ALBUTEROL [Concomitant]
  7. EPOGEN [Concomitant]
  8. FENTANYL CITRATE [Concomitant]
  9. HEPARIN [Concomitant]
  10. INSULIN [Concomitant]
  11. ZOSYN [Concomitant]
  12. ZYVOX [Concomitant]
  13. AMPHOTERIC B [Concomitant]
  14. REGLAN [Concomitant]
  15. PROCRIT [Concomitant]

REACTIONS (2)
  - PLATELET COUNT DECREASED [None]
  - RENAL FAILURE [None]
